FAERS Safety Report 12603011 (Version 2)
Quarter: 2016Q3

REPORT INFORMATION
  Report Type: Report from Study
  Country: US (occurrence: US)
  Receive Date: 20160728
  Receipt Date: 20160802
  Transmission Date: 20161109
  Serious: Yes (Hospitalization)
  Sender: FDA-Public Use
  Company Number: US-009507513-1607USA011900

PATIENT
  Age: 44 Year
  Sex: Male

DRUGS (2)
  1. PEMBROLIZUMAB. [Suspect]
     Active Substance: PEMBROLIZUMAB
     Indication: EWING^S SARCOMA
     Dosage: 200 MG, Q3W
     Route: 042
     Dates: start: 20160531, end: 20160712
  2. AXITINIB [Suspect]
     Active Substance: AXITINIB
     Indication: EWING^S SARCOMA
     Dosage: 4 MG, BID
     Route: 048
     Dates: start: 20160523

REACTIONS (4)
  - Nausea [Recovered/Resolved]
  - Pleural effusion [Not Recovered/Not Resolved]
  - Vomiting [Recovered/Resolved]
  - Dehydration [Recovered/Resolved]

NARRATIVE: CASE EVENT DATE: 20160723
